FAERS Safety Report 14871939 (Version 1)
Quarter: 2018Q2

REPORT INFORMATION
  Report Type: Spontaneous
  Country: FR (occurrence: FR)
  Receive Date: 20180509
  Receipt Date: 20180509
  Transmission Date: 20180711
  Serious: Yes (Other)
  Sender: FDA-Public Use
  Company Number: FR-ROCHE-2118772

PATIENT
  Age: 48 Year
  Sex: Female
  Weight: 63 kg

DRUGS (5)
  1. LASILIX [Concomitant]
     Active Substance: FUROSEMIDE
     Route: 048
  2. COPEGUS [Suspect]
     Active Substance: RIBAVIRIN
     Indication: CHRONIC HEPATITIS C
     Route: 048
     Dates: start: 201311, end: 201405
  3. PROPRANOLOL [Concomitant]
     Active Substance: PROPRANOLOL HYDROCHLORIDE
     Route: 048
  4. SOVALDI [Suspect]
     Active Substance: SOFOSBUVIR
     Indication: CHRONIC HEPATITIS C
     Route: 048
     Dates: start: 201311, end: 201405
  5. SPIRONOLACTONE. [Concomitant]
     Active Substance: SPIRONOLACTONE
     Route: 048

REACTIONS (3)
  - Drug ineffective [Unknown]
  - Hepatitis C RNA increased [Recovered/Resolved]
  - Hepatitis C [Recovered/Resolved]

NARRATIVE: CASE EVENT DATE: 201409
